FAERS Safety Report 13423010 (Version 1)
Quarter: 2017Q2

REPORT INFORMATION
  Report Type: Other
  Country: IE (occurrence: IE)
  Receive Date: 20170410
  Receipt Date: 20170410
  Transmission Date: 20170830
  Serious: Yes (Other)
  Sender: FDA-Public Use
  Company Number: IE-TAKEDA-2017TEU001527

PATIENT
  Age: 50 Year
  Sex: Male

DRUGS (13)
  1. LIPOSIC [Concomitant]
     Active Substance: CARBOMER
     Dosage: UNK
  2. ALLOPURINOL. [Concomitant]
     Active Substance: ALLOPURINOL
     Dosage: UNK
  3. ACTOS [Suspect]
     Active Substance: PIOGLITAZONE HYDROCHLORIDE
     Indication: TYPE 2 DIABETES MELLITUS
     Dosage: UNK
     Route: 048
     Dates: start: 20170205
  4. CANDESARTAN ACTAVIS [Concomitant]
     Active Substance: CANDESARTAN
     Dosage: UNK
     Dates: start: 20170202
  5. GAVISCON                           /06182501/ [Concomitant]
     Dosage: UNK
  6. XYZAL [Concomitant]
     Active Substance: LEVOCETIRIZINE DIHYDROCHLORIDE
     Dosage: UNK
  7. CRESTOR [Concomitant]
     Active Substance: ROSUVASTATIN CALCIUM
     Dosage: UNK
  8. GLUCOPHAGE [Concomitant]
     Active Substance: METFORMIN HYDROCHLORIDE
     Dosage: UNK
  9. CAPRIN [Concomitant]
     Active Substance: ASPIRIN
     Dosage: UNK
  10. ZOTROLE [Concomitant]
     Dosage: UNK
  11. CITALOPRAM [Concomitant]
     Active Substance: CITALOPRAM HYDROBROMIDE
     Dosage: UNK
  12. STILNOCT [Concomitant]
     Active Substance: ZOLPIDEM TARTRATE
     Dosage: UNK
  13. PARALIEF [Concomitant]
     Dosage: UNK

REACTIONS (3)
  - Headache [Recovered/Resolved]
  - Nausea [Recovered/Resolved]
  - Palpitations [Recovered/Resolved]

NARRATIVE: CASE EVENT DATE: 20170206
